FAERS Safety Report 8080115-X (Version None)
Quarter: 2012Q1

REPORT INFORMATION
  Report Type: 
  Country: None (occurrence: None)
  Receive Date: 20120129
  Receipt Date: 20111028
  Transmission Date: 20120608
  Serious: No
  Sender: FDA-Public Use
  Company Number: US-ABBOTT-11P-163-0869467-00

PATIENT
  Sex: Female
  Weight: 76.3 kg

DRUGS (14)
  1. CAFFEINE CITRATE [Concomitant]
     Indication: PRODUCT USED FOR UNKNOWN INDICATION
     Dosage: 2 SERVINGS 1 X A MONTH
     Route: 048
     Dates: start: 20100821, end: 20110201
  2. MULTI-VITAMINS [Concomitant]
     Indication: PRODUCT USED FOR UNKNOWN INDICATION
     Dosage: PILL
     Route: 048
     Dates: start: 20100826, end: 20101006
  3. EXTRA STRENGTH TYLENOL [Concomitant]
     Indication: HEADACHE
     Dosage: 2 PILLS X 1 A DAY
     Route: 048
     Dates: start: 20101114, end: 20101114
  4. MULTI-VITAMINS [Concomitant]
     Dosage: PILL
     Route: 048
     Dates: start: 20101007, end: 20110519
  5. BEER [Concomitant]
     Indication: PRODUCT USED FOR UNKNOWN INDICATION
     Dosage: 1 SERVING 3 X A WEEK
     Route: 048
     Dates: start: 20100826, end: 20101002
  6. LIQUOR [Concomitant]
     Indication: PRODUCT USED FOR UNKNOWN INDICATION
     Dosage: 2 SERVINGS 1 X A DAY
     Route: 048
     Dates: start: 20101002, end: 20101002
  7. MAGNESIUM HYDROXIDE TAB [Concomitant]
     Indication: DYSPEPSIA
     Dosage: 1 TEASPOON 3.5 X A WEEK
     Route: 048
     Dates: start: 20101013, end: 20110519
  8. HUMIRA [Suspect]
     Indication: PSORIATIC ARTHROPATHY
     Route: 050
     Dates: start: 20100826, end: 20100919
  9. GREEN TEA [Concomitant]
     Indication: PRODUCT USED FOR UNKNOWN INDICATION
     Dosage: 1 SERVING ONCE A WEEK
     Route: 048
     Dates: start: 20100826, end: 20101105
  10. COLACE [Concomitant]
     Indication: CONSTIPATION PROPHYLAXIS
     Dosage: 1 PILL 2 X A WEEK
     Route: 048
     Dates: start: 20101021, end: 20110131
  11. COLACE [Concomitant]
     Dosage: 1 PILL 1 X A WEEK
     Route: 048
     Dates: start: 20110201, end: 20110519
  12. COFFEE [Concomitant]
     Indication: PRODUCT USED FOR UNKNOWN INDICATION
     Dosage: 2 SERVINGS 1 X A WEEK
     Route: 048
     Dates: start: 20101226, end: 20110201
  13. MYLANTA [Concomitant]
     Indication: DYSPEPSIA
     Dosage: 1 TEASPOON 3.5 X A WEEK
     Route: 048
     Dates: start: 20101013, end: 20110519
  14. ACETAMINOPHEN [Concomitant]
     Indication: HEADACHE
     Route: 048
     Dates: start: 20101103, end: 20101103

REACTIONS (2)
  - MENORRHAGIA [None]
  - PLACENTAL DISORDER [None]
